FAERS Safety Report 19444676 (Version 1)
Quarter: 2021Q2

REPORT INFORMATION
  Report Type: Spontaneous
  Country: IT (occurrence: IT)
  Receive Date: 20210621
  Receipt Date: 20210621
  Transmission Date: 20210717
  Serious: Yes (Other)
  Sender: FDA-Public Use
  Company Number: IT-MYLANLABS-2021M1035728

PATIENT
  Age: 31 Year
  Sex: Male

DRUGS (1)
  1. ITRACONAZOLE. [Suspect]
     Active Substance: ITRACONAZOLE
     Indication: MYCETOMA MYCOTIC
     Dosage: 200 MG, QD,DURING THE MAIN MEAL AND WITHOUT ANY CO?ADMINISTRATION OF ANTACIDS OR OTHER MEDICINES
     Route: 065

REACTIONS (1)
  - Drug ineffective [Unknown]
